FAERS Safety Report 5820551-2 (Version None)
Quarter: 2008Q3

REPORT INFORMATION
  Report Type: 
  Country: None (occurrence: None)
  Receive Date: 20080724
  Receipt Date: 20071023
  Transmission Date: 20090109
  Serious: No
  Sender: FDA-Public Use
  Company Number: A0689243A

PATIENT
  Age: 54 Year
  Sex: Female

DRUGS (2)
  1. AVANDIA [Suspect]
     Dosage: 8MG PER DAY
     Route: 048
     Dates: start: 20070901, end: 20070901
  2. LOTREL [Concomitant]

REACTIONS (3)
  - DRY MOUTH [None]
  - ILL-DEFINED DISORDER [None]
  - VISION BLURRED [None]
